FAERS Safety Report 4561927-3 (Version None)
Quarter: 2005Q1

REPORT INFORMATION
  Report Type: 
  Country: None (occurrence: None)
  Receive Date: 20050125
  Receipt Date: 20050114
  Transmission Date: 20050727
  Serious: Yes (Hospitalization, Other)
  Sender: FDA-Public Use
  Company Number: KII-2005-0014660

PATIENT
  Age: 46 Year
  Sex: Female

DRUGS (3)
  1. MORPHINE SULFATE [Suspect]
     Indication: PAIN
     Dosage: ORAL
     Route: 048
  2. HYDROMORPHONE HCL [Suspect]
     Indication: PAIN
     Dosage: ORAL
     Route: 048
  3. SKELAXIN [Suspect]
     Indication: PAIN
     Dosage: ORAL
     Route: 048

REACTIONS (15)
  - ACIDOSIS [None]
  - BAND NEUTROPHIL COUNT DECREASED [None]
  - BAND NEUTROPHIL COUNT INCREASED [None]
  - BLOOD ELECTROLYTES ABNORMAL [None]
  - COMA [None]
  - DYSKINESIA [None]
  - ELECTROENCEPHALOGRAM ABNORMAL [None]
  - INFLUENZA [None]
  - PERIPHERAL COLDNESS [None]
  - PNEUMONIA BACTERIAL [None]
  - PO2 DECREASED [None]
  - PYREXIA [None]
  - RESPIRATORY DEPRESSION [None]
  - SINUS TACHYCARDIA [None]
  - WHITE BLOOD CELL COUNT DECREASED [None]
